FAERS Safety Report 9675869 (Version 3)
Quarter: 2013Q4

REPORT INFORMATION
  Report Type: Spontaneous
  Country: US (occurrence: US)
  Receive Date: 20131107
  Receipt Date: 20131115
  Transmission Date: 20140711
  Serious: Yes (Death, Hospitalization, Other)
  Sender: FDA-Public Use
  Company Number: US-B.I. PHARMACEUTICALS,INC./RIDGEFIELD-2013-BI-35906BP

PATIENT
  Age: 76 Year
  Sex: Male
  Weight: 123.83 kg

DRUGS (9)
  1. PRADAXA [Suspect]
     Indication: CEREBROVASCULAR ACCIDENT PROPHYLAXIS
     Dosage: 300 MG
     Dates: start: 20110125, end: 20131030
  2. PRADAXA [Suspect]
     Indication: ATRIAL FIBRILLATION
  3. AMARYL [Concomitant]
  4. CARDIZEM [Concomitant]
  5. LOPRESSOR [Concomitant]
     Dosage: 200 MG
  6. FUROSEMIDE [Concomitant]
     Dosage: 40 MG
  7. PRAVASTATIN [Concomitant]
     Dosage: 40 MG
  8. NITROGLYCERIN [Concomitant]
  9. IMDUR [Concomitant]
     Dosage: 30 MG

REACTIONS (5)
  - Myocardial infarction [Fatal]
  - Abdominal strangulated hernia [Recovered/Resolved]
  - Abdominal hernia [Recovered/Resolved]
  - Small intestinal obstruction [Unknown]
  - Atrial fibrillation [Unknown]
